FAERS Safety Report 11931968 (Version 4)
Quarter: 2017Q4

REPORT INFORMATION
  Report Type: Spontaneous
  Country: US (occurrence: US)
  Receive Date: 20160120
  Receipt Date: 20171128
  Transmission Date: 20180320
  Serious: No
  Sender: FDA-Public Use
  Company Number: US-PFIZER INC-2015476347

PATIENT
  Age: 60 Year
  Sex: Female
  Weight: 88.66 kg

DRUGS (7)
  1. CALCIUM [Concomitant]
     Active Substance: CALCIUM
     Dosage: 600 MG, 3X/DAY
  2. AROMASIN [Suspect]
     Active Substance: EXEMESTANE
     Dosage: 25 MG, DAILY
     Route: 048
     Dates: start: 201106, end: 201711
  3. ZANAFLEX [Concomitant]
     Active Substance: TIZANIDINE HYDROCHLORIDE
     Dosage: 4 MG, AS NEEDED (1 TABLET EVERY 6 HOURS AS NEEDED)
  4. AROMASIN [Suspect]
     Active Substance: EXEMESTANE
     Indication: BREAST CANCER FEMALE
     Dosage: 25 MG, 1X/DAY
     Route: 048
     Dates: start: 2011, end: 201711
  5. METFORMIN [Concomitant]
     Active Substance: METFORMIN HYDROCHLORIDE
     Indication: NEOPLASM MALIGNANT
     Dosage: 850 MG, UNK
     Dates: start: 2011
  6. VITAMIN B12 [Concomitant]
     Active Substance: CYANOCOBALAMIN
     Dosage: UNK
     Route: 048
  7. SYNTHROID [Concomitant]
     Active Substance: LEVOTHYROXINE SODIUM
     Dosage: 112 UG, DAILY

REACTIONS (4)
  - Neoplasm progression [Unknown]
  - Malaise [Unknown]
  - Nasopharyngitis [Unknown]
  - Feeling abnormal [Unknown]

NARRATIVE: CASE EVENT DATE: 2017
